FAERS Safety Report 16089395 (Version 3)
Quarter: 2019Q2

REPORT INFORMATION
  Report Type: Spontaneous
  Country: US (occurrence: US)
  Receive Date: 20190319
  Receipt Date: 20190506
  Transmission Date: 20190711
  Serious: No
  Sender: FDA-Public Use
  Company Number: US-SA-2019SA023361

PATIENT
  Age: 16 Year
  Sex: Male

DRUGS (5)
  1. FABRAZYME [Suspect]
     Active Substance: AGALSIDASE BETA
     Dosage: 55 MG. QOW
     Route: 041
     Dates: start: 20190413
  2. FABRAZYME [Suspect]
     Active Substance: AGALSIDASE BETA
     Indication: FABRY^S DISEASE
     Dosage: 35 MG, QOW
     Route: 041
     Dates: start: 20181105, end: 20190413
  3. BENADRYL [Concomitant]
     Active Substance: DIPHENHYDRAMINE HYDROCHLORIDE
     Indication: PREMEDICATION
     Route: 048
  4. TYLENOL [Concomitant]
     Active Substance: ACETAMINOPHEN
     Indication: PREMEDICATION
     Route: 048
  5. FABRAZYME [Suspect]
     Active Substance: AGALSIDASE BETA
     Dosage: 20 MG, QOW
     Route: 041
     Dates: start: 20181105, end: 20190413

REACTIONS (13)
  - Tremor [Recovered/Resolved]
  - Burning sensation [Unknown]
  - Pyrexia [Recovered/Resolved]
  - Pain [Unknown]
  - Pain in extremity [Recovered/Resolved]
  - Burning sensation [Not Recovered/Not Resolved]
  - Throat irritation [Recovered/Resolved]
  - Dizziness [Unknown]
  - Sensitivity to weather change [Unknown]
  - Tinnitus [Unknown]
  - Pain in extremity [Unknown]
  - Erythema [Recovered/Resolved]
  - Pyrexia [Unknown]

NARRATIVE: CASE EVENT DATE: 20190413
